FAERS Safety Report 4614887-0 (Version None)
Quarter: 2005Q1

REPORT INFORMATION
  Report Type: 
  Country: None (occurrence: None)
  Receive Date: 20050322
  Receipt Date: 20050104
  Transmission Date: 20050727
  Serious: Yes (Other)
  Sender: FDA-Public Use
  Company Number: PHRM2005FR00472

PATIENT
  Age: 69 Year
  Sex: Female
  Weight: 68 kg

DRUGS (10)
  1. DIALGIREX [Suspect]
     Indication: PAIN
     Dosage: 6 DF DAILY
     Route: 048
     Dates: start: 20030601, end: 20041209
  2. GLEEVEC [Suspect]
     Indication: CHRONIC MYELOID LEUKAEMIA
     Route: 048
  3. FUROSEMIDE [Concomitant]
     Indication: OEDEMA
     Dosage: 20 MG DAILY
     Route: 048
     Dates: start: 20010101
  4. ESBERIVEN [Concomitant]
     Indication: VENOUS INSUFFICIENCY
     Dosage: 2 DF DAILY
     Route: 048
     Dates: start: 20010101
  5. ZOLOFT [Concomitant]
     Indication: DEPRESSION
     Dosage: 50 MG DAILY
     Route: 048
     Dates: start: 20010101
  6. DEPAMIDE [Concomitant]
     Dosage: 300 MG DAILY
     Route: 048
     Dates: start: 20010101
  7. ENALAPRIL [Concomitant]
     Indication: DEPRESSION
     Dosage: 20 MG DAILY
     Route: 048
     Dates: start: 20010101
  8. TRANXENE [Concomitant]
     Indication: DEPRESSION
     Dosage: 5 MG, QD
     Route: 048
     Dates: start: 20010101
  9. LAROXYL [Concomitant]
     Indication: DEPRESSION
     Dosage: 12.5 MG, QD
     Route: 048
     Dates: start: 20010101
  10. TERCIAN [Concomitant]
     Indication: DEPRESSION
     Dosage: 12.5 MG, QD
     Route: 048
     Dates: start: 20010101

REACTIONS (8)
  - ADENOCARCINOMA PANCREAS [None]
  - BLOOD ALKALINE PHOSPHATASE INCREASED [None]
  - CHOLESTASIS [None]
  - CYTOLYTIC HEPATITIS [None]
  - DILATATION INTRAHEPATIC DUCT ACQUIRED [None]
  - GAMMA-GLUTAMYLTRANSFERASE INCREASED [None]
  - PANCREATIC DISORDER [None]
  - TRANSAMINASES INCREASED [None]
